FAERS Safety Report 10732715 (Version 1)
Quarter: 2015Q1

REPORT INFORMATION
  Report Type: Spontaneous
  Country: US (occurrence: None)
  Receive Date: 20150120
  Receipt Date: 20150120
  Transmission Date: 20150721
  Serious: Yes (Other)
  Sender: FDA-Public Use
  Company Number: INT_00644_2015

PATIENT
  Age: 17 Year
  Sex: Male

DRUGS (4)
  1. CISPLATIN  (HQ SPECIALTY) [Suspect]
     Active Substance: CISPLATIN
     Indication: OSTEOSARCOMA
  2. IFOSFAMIDE. [Suspect]
     Active Substance: IFOSFAMIDE
     Indication: OSTEOSARCOMA
  3. ADRIAMYCIN [Suspect]
     Active Substance: DOXORUBICIN HYDROCHLORIDE
     Indication: OSTEOSARCOMA
  4. METHOTREXATE [Suspect]
     Active Substance: METHOTREXATE
     Indication: OSTEOSARCOMA

REACTIONS (3)
  - Oligospermia [None]
  - Blood follicle stimulating hormone abnormal [None]
  - Androgen deficiency [None]
